FAERS Safety Report 8230196-5 (Version None)
Quarter: 2012Q1

REPORT INFORMATION
  Report Type: 
  Country: None (occurrence: None)
  Receive Date: 20120323
  Receipt Date: 20120314
  Transmission Date: 20120608
  Serious: Yes (Death, Life-Threatening, Other)
  Sender: FDA-Public Use
  Company Number: IR-GE HEALTHCARE MEDICAL DIAGNOSTICS-OMPQ-NO-1203L-0320

PATIENT
  Age: 48 Year
  Sex: Male

DRUGS (2)
  1. OMNIPAQUE 140 [Suspect]
     Indication: PARAESTHESIA
     Route: 037
     Dates: start: 20110101, end: 20110101
  2. OMNIPAQUE 140 [Suspect]
     Indication: BACK PAIN

REACTIONS (16)
  - HAEMATURIA [None]
  - TONIC CONVULSION [None]
  - GASTROINTESTINAL HAEMORRHAGE [None]
  - MYOCLONUS [None]
  - ANAPHYLACTOID SHOCK [None]
  - APNOEA [None]
  - RHABDOMYOLYSIS [None]
  - DISSEMINATED INTRAVASCULAR COAGULATION [None]
  - STATUS EPILEPTICUS [None]
  - CYANOSIS [None]
  - CARDIAC ARREST [None]
  - PAIN IN EXTREMITY [None]
  - AGITATION [None]
  - DEPRESSED LEVEL OF CONSCIOUSNESS [None]
  - HYPOTENSION [None]
  - BRADYCARDIA [None]
